FAERS Safety Report 16402724 (Version 1)
Quarter: 2019Q2

REPORT INFORMATION
  Report Type: Spontaneous
  Country: DE (occurrence: DE)
  Receive Date: 20190607
  Receipt Date: 20190607
  Transmission Date: 20190711
  Serious: Yes (Other)
  Sender: FDA-Public Use
  Company Number: DE-TEVA-2019-DE-1056777

PATIENT
  Age: 7 Decade
  Sex: Female

DRUGS (2)
  1. COPAXONE [Suspect]
     Active Substance: GLATIRAMER ACETATE
     Dosage: USAGE OF 40 MG/ML
     Dates: start: 2016
  2. COPAXONE [Suspect]
     Active Substance: GLATIRAMER ACETATE
     Dosage: USAGE OF 20 MG/ML
     Dates: start: 2013, end: 2016

REACTIONS (2)
  - Flushing [Unknown]
  - Multiple sclerosis relapse [Unknown]
